FAERS Safety Report 6500188-2 (Version None)
Quarter: 2009Q4

REPORT INFORMATION
  Report Type: 
  Country: None (occurrence: None)
  Receive Date: 20091214
  Receipt Date: 20091214
  Transmission Date: 20100525
  Serious: Yes (Hospitalization)
  Sender: FDA-Public Use
  Company Number: None

PATIENT
  Age: 79 Year
  Sex: Female
  Weight: 53.0709 kg

DRUGS (1)
  1. AIRICEPT - PFIZER 10MG. [Suspect]
     Indication: MEMORY IMPAIRMENT
     Dosage: 1 BEDTIME MOUTH FOR 2 WEEKS
     Route: 048
     Dates: start: 20091115, end: 20091130

REACTIONS (3)
  - AMNESIA [None]
  - DISORIENTATION [None]
  - MALAISE [None]
